FAERS Safety Report 21653702 (Version 6)
Quarter: 2023Q1

REPORT INFORMATION
  Report Type: Report from Study
  Country: US (occurrence: None)
  Receive Date: 20221129
  Receipt Date: 20230205
  Transmission Date: 20230418
  Serious: Yes (Death, Hospitalization, Other)
  Sender: FDA-Public Use
  Company Number: US-ROCHE-3221543

PATIENT
  Age: 58 Year
  Sex: Male
  Weight: 98.6 kg

DRUGS (22)
  1. POLATUZUMAB VEDOTIN [Suspect]
     Active Substance: POLATUZUMAB VEDOTIN
     Indication: B-cell lymphoma
     Dosage: LAST DOSE : 02/NOV/2022
     Route: 042
     Dates: start: 20220921
  2. LONCASTUXIMAB TESIRINE [Suspect]
     Active Substance: LONCASTUXIMAB TESIRINE
     Indication: B-cell lymphoma
     Dosage: ADMINISTERED PRIOR TO THE SAE WAS ON 02/NOV/2022
     Route: 042
     Dates: start: 20220921
  3. ACETAMINOPHEN [Concomitant]
     Active Substance: ACETAMINOPHEN
  4. IBUPROFEN [Concomitant]
     Active Substance: IBUPROFEN
  5. REMDESIVIR [Concomitant]
     Active Substance: REMDESIVIR
  6. ASPIRIN [Concomitant]
     Active Substance: ASPIRIN
  7. PLAVIX [Concomitant]
     Active Substance: CLOPIDOGREL BISULFATE
  8. PRAVACHOL [Concomitant]
     Active Substance: PRAVASTATIN SODIUM
  9. ZOVIRAX [Concomitant]
     Active Substance: ACYCLOVIR
  10. ZESTRIL [Concomitant]
     Active Substance: LISINOPRIL
  11. LORATADINE [Concomitant]
     Active Substance: LORATADINE
  12. COLACE [Concomitant]
     Active Substance: DOCUSATE SODIUM
  13. MIRALAX [Concomitant]
     Active Substance: POLYETHYLENE GLYCOL 3350
  14. RITONAVIR [Concomitant]
     Active Substance: RITONAVIR
  15. ZYLOPRIM [Concomitant]
     Active Substance: ALLOPURINOL
  16. DEXAMETHASONE [Concomitant]
     Active Substance: DEXAMETHASONE
  17. TYLENOL [Concomitant]
     Active Substance: ACETAMINOPHEN
  18. BENADRYL [Concomitant]
     Active Substance: DIPHENHYDRAMINE HYDROCHLORIDE
  19. BACTRIM DS [Concomitant]
     Active Substance: SULFAMETHOXAZOLE\TRIMETHOPRIM
  20. TUMS [Concomitant]
     Active Substance: CALCIUM CARBONATE
  21. MILK OF MAGNESIA [Concomitant]
     Active Substance: MAGNESIUM HYDROXIDE
  22. GAS-X [Concomitant]
     Active Substance: DIMETHICONE

REACTIONS (4)
  - Hypoxia [Not Recovered/Not Resolved]
  - COVID-19 [Fatal]
  - Pneumonia [Not Recovered/Not Resolved]
  - Pneumomediastinum [Not Recovered/Not Resolved]

NARRATIVE: CASE EVENT DATE: 20221108
